FAERS Safety Report 4589342-7 (Version None)
Quarter: 2005Q1

REPORT INFORMATION
  Report Type: 
  Country: None (occurrence: None)
  Receive Date: 20050216
  Receipt Date: 20050202
  Transmission Date: 20050727
  Serious: Yes (Other)
  Sender: FDA-Public Use
  Company Number: CIP05000312

PATIENT
  Age: 39 Year
  Sex: Male

DRUGS (1)
  1. DANTRIUM [Suspect]
     Indication: NEUROLEPTIC MALIGNANT SYNDROME
     Dosage: 100 MG DAILY, IV DRIP
     Route: 041
     Dates: start: 20050201

REACTIONS (3)
  - CONDITION AGGRAVATED [None]
  - PLEURAL EFFUSION [None]
  - RESPIRATORY FAILURE [None]
